FAERS Safety Report 4946304-5 (Version None)
Quarter: 2006Q1

REPORT INFORMATION
  Report Type: 
  Country: None (occurrence: None)
  Receive Date: 20060316
  Receipt Date: 20060316
  Transmission Date: 20060701
  Serious: Yes (Hospitalization)
  Sender: FDA-Public Use
  Company Number: None

PATIENT
  Age: 41 Year
  Sex: Male
  Weight: 63.5036 kg

DRUGS (20)
  1. ADEKS AXCAN PHARM [Suspect]
     Indication: CYSTIC FIBROSIS
     Dosage: 1 TABLET DAILY PO [CHRONIC HOME MED]
     Route: 048
  2. ADEKS AXCAN PHARM [Suspect]
     Indication: HYPOVITAMINOSIS
     Dosage: 1 TABLET DAILY PO [CHRONIC HOME MED]
     Route: 048
  3. TACROLIMUS [Concomitant]
  4. PREDNISONE [Concomitant]
  5. CREON [Concomitant]
  6. TRIMETHOPRIM + SULFAMETHOXAZOLE [Concomitant]
  7. OYSTERSHELL CALCIUM + VITAMIN CD [Concomitant]
  8. MULTIMVITAMIN [Concomitant]
  9. DOCUSATE SODIUM [Concomitant]
  10. MAGNESIUM GLUCONATE [Concomitant]
  11. PAROXETINE HCL [Concomitant]
  12. GANCICLOVIR [Concomitant]
  13. RISPERDAL [Concomitant]
  14. FLUTICISONE NASAL [Concomitant]
  15. CLONIDINE [Concomitant]
  16. ITRACONAZOLE [Concomitant]
  17. ALPRAZOLAM [Concomitant]
  18. ALENDRONATE SODIUM [Concomitant]
  19. ZOLPIDIEM [Concomitant]
  20. NPH INSULIN [Concomitant]

REACTIONS (5)
  - DRUG INEFFECTIVE [None]
  - HEADACHE [None]
  - LUNG INFECTION [None]
  - LUNG TRANSPLANT REJECTION [None]
  - VITAMIN A INCREASED [None]
